FAERS Safety Report 15278324 (Version 1)
Quarter: 2018Q3

REPORT INFORMATION
  Report Type: Spontaneous
  Country: JP (occurrence: JP)
  Receive Date: 20180814
  Receipt Date: 20180814
  Transmission Date: 20181010
  Serious: Yes (Other)
  Sender: FDA-Public Use
  Company Number: JP-ALLERGAN-1839612US

PATIENT
  Age: 4 Year
  Sex: Female

DRUGS (58)
  1. URSODEOXYCHOLIC ACID ? BP [Suspect]
     Active Substance: URSODIOL
     Indication: INFLAMMATORY BOWEL DISEASE
     Dosage: 2.4 G A DAY
     Route: 048
     Dates: start: 20170318
  2. REMICADE [Suspect]
     Active Substance: INFLIXIMAB
     Indication: INFLAMMATORY BOWEL DISEASE
     Dosage: 60 MG (DAILY DOSE)
     Route: 041
     Dates: start: 20160524
  3. REMICADE [Suspect]
     Active Substance: INFLIXIMAB
     Dosage: UNK UNK, SINGLE
     Route: 041
     Dates: start: 201705, end: 201705
  4. REMICADE [Suspect]
     Active Substance: INFLIXIMAB
     Dosage: UNK UNK, SINGLE
     Route: 041
     Dates: start: 20170719, end: 20170719
  5. INTRALIPOS [Concomitant]
     Active Substance: SOYBEAN OIL
     Dosage: 100 ML A DAY
     Route: 041
     Dates: start: 20161118, end: 20161119
  6. ISOTONIC SODIUM CHLORIDE SOLUTION [Concomitant]
     Active Substance: SODIUM CHLORIDE
     Dosage: 250 ML X1, 50 ML X 1, 50 ML X 1 A DAY
     Route: 041
     Dates: start: 20160705, end: 20160705
  7. ISOTONIC SODIUM CHLORIDE SOLUTION [Concomitant]
     Active Substance: SODIUM CHLORIDE
     Dosage: 250 ML X1, 50 ML X 1, 50 ML X 1 A DAY
     Route: 041
     Dates: start: 20160607, end: 20160607
  8. MEIACT [Concomitant]
     Active Substance: CEFDITOREN PIVOXIL
     Dosage: 1.05 G A DAY
     Route: 048
     Dates: start: 20160601, end: 20160606
  9. HEPAFLUSH [Concomitant]
     Active Substance: HEPARIN SODIUM
     Dosage: 10 ML A DAY
     Route: 040
     Dates: start: 20170116, end: 20170116
  10. INFLUENZA HA VACCINE [Concomitant]
     Active Substance: INFLUENZA VIRUS VACCINE
     Dosage: 0.5 ML A DAY
     Route: 058
     Dates: start: 20170116, end: 20170116
  11. MUCOSAL [Concomitant]
     Dosage: 0.6 G A DAY
     Route: 048
     Dates: start: 20170307, end: 20170324
  12. MUCOSAL [Concomitant]
     Dosage: 0.6 G A DAY
     Route: 048
     Dates: start: 20161118, end: 20161125
  13. INTRALIPOS [Concomitant]
     Active Substance: SOYBEAN OIL
     Dosage: 120 ML A DAY
     Route: 041
     Dates: start: 20161003, end: 20161005
  14. INTRALIPOS [Concomitant]
     Active Substance: SOYBEAN OIL
     Dosage: 120 ML A DAY
     Route: 041
     Dates: start: 20160920, end: 20160922
  15. INTRALIPOS [Concomitant]
     Active Substance: SOYBEAN OIL
     Dosage: 120 ML A DAY
     Route: 041
     Dates: start: 20160524, end: 20160527
  16. POLARAMINE [Concomitant]
     Active Substance: DEXCHLORPHENIRAMINE MALEATE
     Dosage: 5 MG A DAY
     Route: 040
     Dates: start: 20160705, end: 20160705
  17. GASMOTIN [Concomitant]
     Active Substance: MOSAPRIDE CITRATE
     Dosage: 0.5 MG A DAY
     Route: 048
     Dates: start: 20160922, end: 20180118
  18. JEBIK V [Concomitant]
     Dosage: 0.5 ML A DAY
     Route: 058
     Dates: start: 20170116, end: 20170116
  19. ZYRTEC [Concomitant]
     Active Substance: CETIRIZINE HYDROCHLORIDE
     Dosage: 0.4 G A DAY
     Route: 048
     Dates: start: 20170512, end: 20170516
  20. CLARITHROMYCIN. [Concomitant]
     Active Substance: CLARITHROMYCIN
     Dosage: 1.5 G A DAY
     Route: 048
     Dates: start: 20170614, end: 20170619
  21. RAVONAL [Concomitant]
     Active Substance: THIOPENTAL
     Dosage: 60 MG A DAY
     Route: 040
     Dates: start: 20170821, end: 20170821
  22. REMICADE [Suspect]
     Active Substance: INFLIXIMAB
     Dosage: 10 MG/KG, SINGLE
     Route: 041
     Dates: start: 20171024, end: 20171212
  23. PENTASA [Concomitant]
     Active Substance: MESALAMINE
     Dosage: 390 MG A DAY
     Route: 048
     Dates: start: 20160106
  24. INTRALIPOS [Concomitant]
     Active Substance: SOYBEAN OIL
     Dosage: 120 ML A DAY
     Route: 041
     Dates: start: 20170418, end: 20170420
  25. INTRALIPOS [Concomitant]
     Active Substance: SOYBEAN OIL
     Dosage: 120 ML A DAY
     Route: 041
     Dates: start: 20160817, end: 20160819
  26. INTRALIPOS [Concomitant]
     Active Substance: SOYBEAN OIL
     Dosage: 120 ML A DAY
     Route: 041
     Dates: start: 20160802, end: 20160805
  27. MEIACT [Concomitant]
     Active Substance: CEFDITOREN PIVOXIL
     Dosage: 1.05 G A DAY
     Route: 048
     Dates: start: 20160617, end: 20160619
  28. HOKUNALIN [Concomitant]
     Active Substance: TULOBUTEROL
     Dosage: 1 MG A DAY
     Route: 061
     Dates: start: 20170614, end: 20170619
  29. REMICADE [Suspect]
     Active Substance: INFLIXIMAB
     Dosage: UNK UNK, SINGLE
     Route: 041
     Dates: start: 20161214
  30. BIOFERMIN [Concomitant]
     Active Substance: BACILLUS SUBTILIS\LACTOBACILLUS ACIDOPHILUS\STREPTOCOCCUS FAECAIS
     Dosage: 1.6 G A DAY
     Route: 048
     Dates: start: 20160501, end: 20170704
  31. INTRALIPOS [Concomitant]
     Active Substance: SOYBEAN OIL
     Dosage: 120 ML A DAY
     Route: 041
     Dates: start: 20170306, end: 20170308
  32. INTRALIPOS [Concomitant]
     Active Substance: SOYBEAN OIL
     Dosage: 100 ML A DAY
     Route: 041
     Dates: start: 20170116, end: 20170117
  33. SAXIZON [Concomitant]
     Active Substance: HYDROCORTISONE SODIUM SUCCINATE
     Dosage: 100 MG A DAY
     Route: 040
     Dates: start: 20160705, end: 20160705
  34. INTRALIPOS [Concomitant]
     Active Substance: SOYBEAN OIL
     Dosage: 120 ML A DAY
     Route: 041
     Dates: start: 20160607, end: 20160610
  35. CARBOCISTEINE [Concomitant]
     Active Substance: CARBOCYSTEINE
     Dosage: 0.6 G A DAY
     Route: 048
     Dates: start: 20161118, end: 20161125
  36. SIMPLE SYRUP [Concomitant]
     Dosage: 3 ML A DAY
     Route: 048
     Dates: start: 20170307, end: 20170324
  37. REMICADE [Suspect]
     Active Substance: INFLIXIMAB
     Dosage: UNK UNK, SINGLE
     Route: 041
     Dates: start: 20160607
  38. REMICADE [Suspect]
     Active Substance: INFLIXIMAB
     Dosage: UNK UNK, SINGLE
     Route: 041
     Dates: start: 20160705
  39. MARZULENE S [Concomitant]
     Active Substance: GLUTAMINE\SODIUM GUALENATE
     Dosage: 1.5 G A DAY
     Route: 048
     Dates: start: 20160411, end: 20170512
  40. MIYA?BM [Concomitant]
     Active Substance: CLOSTRIDIUM BUTYRICUM SPORES STRAIN M-55
     Dosage: 1.7 G A DAY
     Route: 048
     Dates: start: 20160501
  41. INTRALIPOS [Concomitant]
     Active Substance: SOYBEAN OIL
     Dosage: 120 ML A DAY
     Route: 041
     Dates: start: 20160620, end: 20160622
  42. HEPAFLUSH [Concomitant]
     Active Substance: HEPARIN SODIUM
     Dosage: 10 ML A DAY
     Route: 040
     Dates: start: 20170418, end: 20170418
  43. HEPAFLUSH [Concomitant]
     Active Substance: HEPARIN SODIUM
     Dosage: 10 ML A DAY
     Route: 040
     Dates: start: 20161118, end: 20161118
  44. MESALAZINE [Concomitant]
     Active Substance: MESALAMINE
     Dosage: 250 MG A DAY
     Route: 048
     Dates: start: 20170314
  45. REMICADE [Suspect]
     Active Substance: INFLIXIMAB
     Dosage: 10 MG/KG, SINGLE
     Route: 041
     Dates: start: 20171212
  46. HEPAFLUSH [Concomitant]
     Active Substance: HEPARIN SODIUM
     Dosage: 10 ML A DAY
     Route: 040
     Dates: start: 20160607, end: 20160607
  47. REMICADE [Suspect]
     Active Substance: INFLIXIMAB
     Dosage: UNK UNK, SINGLE
     Route: 041
     Dates: start: 20161024, end: 20161024
  48. ELENTAL [Concomitant]
     Active Substance: AMINO ACIDS\CARBOHYDRATES\MINERALS\SOYBEAN OIL\VITAMINS
     Dosage: 320 MG A DAY
     Route: 048
     Dates: start: 20160106
  49. LANSOPRAZOLE. [Concomitant]
     Active Substance: LANSOPRAZOLE
     Dosage: 15 MG A DAY
     Route: 048
     Dates: start: 20160318
  50. BIOLACTIS [Concomitant]
     Active Substance: LACTOBACILLUS CASEI
     Dosage: 1.5 G A DAY
     Route: 048
     Dates: start: 20160501, end: 20170704
  51. INTRALIPOS [Concomitant]
     Active Substance: SOYBEAN OIL
     Dosage: 120 ML A DAY
     Route: 041
     Dates: start: 20160719, end: 20160722
  52. INTRALIPOS [Concomitant]
     Active Substance: SOYBEAN OIL
     Dosage: 120 ML A DAY
     Route: 041
     Dates: start: 20160705, end: 20160708
  53. ISOTONIC SODIUM CHLORIDE SOLUTION [Concomitant]
     Active Substance: SODIUM CHLORIDE
     Dosage: 250 ML X1, 50 ML X 1, 50 ML X 1 A DAY
     Route: 041
     Dates: start: 20160524, end: 20160524
  54. HEPAFLUSH [Concomitant]
     Active Substance: HEPARIN SODIUM
     Dosage: 10 ML A DAY
     Route: 040
     Dates: start: 20170306, end: 20170306
  55. LEVOCARNITINE. [Concomitant]
     Active Substance: LEVOCARNITINE
     Dosage: 2 ML A DAY
     Route: 048
     Dates: start: 20160805
  56. IMURAN [Concomitant]
     Active Substance: AZATHIOPRINE
     Dosage: 6 MG A DAY
     Route: 048
     Dates: start: 20161005
  57. INFLUENZA HA VACCINE [Concomitant]
     Active Substance: INFLUENZA VIRUS VACCINE
     Dosage: 0.5 ML A DAY
     Route: 058
     Dates: start: 20161118, end: 20161118
  58. CARBOCISTEINE [Concomitant]
     Active Substance: CARBOCYSTEINE
     Dosage: 0.6 G A DAY
     Route: 048
     Dates: start: 20170307, end: 20170324

REACTIONS (4)
  - Diabetes insipidus [Recovering/Resolving]
  - Off label use [Unknown]
  - Hypophysitis [Recovering/Resolving]
  - Dwarfism [Recovering/Resolving]

NARRATIVE: CASE EVENT DATE: 20170821
